FAERS Safety Report 21955632 (Version 1)
Quarter: 2023Q1

REPORT INFORMATION
  Report Type: Spontaneous
  Country: GB (occurrence: GB)
  Receive Date: 20230206
  Receipt Date: 20230206
  Transmission Date: 20230417
  Serious: Yes (Disabling)
  Sender: FDA-Public Use
  Company Number: None

PATIENT
  Sex: Female

DRUGS (1)
  1. ALENDRONATE SODIUM [Suspect]
     Active Substance: ALENDRONATE SODIUM
     Indication: Osteoporotic fracture
     Dosage: 70MG ONCE A WEEK
     Dates: end: 20230108

REACTIONS (2)
  - Medication error [Unknown]
  - Hiatus hernia [Not Recovered/Not Resolved]
